FAERS Safety Report 4426594-8 (Version None)
Quarter: 2004Q3

REPORT INFORMATION
  Report Type: 
  Country: None (occurrence: None)
  Receive Date: 20040811
  Receipt Date: 20040805
  Transmission Date: 20050211
  Serious: Yes (Life-Threatening)
  Sender: FDA-Public Use
  Company Number: 200410414BYL

PATIENT
  Age: 73 Year
  Sex: Male

DRUGS (3)
  1. CIPROXAN200 (CIPROFLOXACIN HYDROCHLORIDE) [Suspect]
     Indication: UPPER RESPIRATORY TRACT INFLAMMATION
     Dosage: 200 MG, TID, ORAL
     Route: 048
     Dates: start: 20040802, end: 20040803
  2. PL [Suspect]
     Indication: UPPER RESPIRATORY TRACT INFLAMMATION
     Dosage: ORAL
     Route: 048
     Dates: start: 20040802, end: 20040803
  3. NICOLDA (TRANEXAMIC ACID) [Suspect]
     Indication: UPPER RESPIRATORY TRACT INFLAMMATION
     Dosage: 250 MG, TID, ORAL
     Route: 048
     Dates: start: 20040802, end: 20040803

REACTIONS (4)
  - HEPATITIS ACUTE [None]
  - HYPOGLYCAEMIA [None]
  - RENAL FAILURE ACUTE [None]
  - RHABDOMYOLYSIS [None]
